FAERS Safety Report 9052620 (Version 1)
Quarter: 2013Q1

REPORT INFORMATION
  Report Type: Spontaneous
  Country: US (occurrence: US)
  Receive Date: 20130207
  Receipt Date: 20130207
  Transmission Date: 20140127
  Serious: Yes (Other)
  Sender: FDA-Public Use
  Company Number: US-ELI_LILLY_AND_COMPANY-US201301009907

PATIENT
  Sex: Male

DRUGS (4)
  1. CYMBALTA [Suspect]
     Indication: DEPRESSION
     Dosage: 30 MG, QD
     Dates: start: 2011
  2. CYMBALTA [Suspect]
     Dosage: 60 MG, QD
  3. CYMBALTA [Suspect]
     Dosage: 90 MG, QD
  4. CYMBALTA [Suspect]
     Dosage: 60 MG, QD
     Dates: start: 2012

REACTIONS (5)
  - Compression fracture [Unknown]
  - Fall [Unknown]
  - Myalgia [Unknown]
  - Dizziness [Unknown]
  - Abnormal dreams [Unknown]
